FAERS Safety Report 4712650-3 (Version None)
Quarter: 2005Q3

REPORT INFORMATION
  Report Type: 
  Country: None (occurrence: None)
  Receive Date: 20050706
  Receipt Date: 20041214
  Transmission Date: 20060218
  Serious: Yes (Death, Hospitalization)
  Sender: FDA-Public Use
  Company Number: US-2004-031197

PATIENT
  Age: 77 Year
  Sex: Female
  Weight: 57.1 kg

DRUGS (14)
  1. CAMPATH [Suspect]
     Indication: T-CELL CHRONIC LYMPHOCYTIC LEUKAEMIA
     Dosage: 3/10/30MG, INTRAVENOUS
     Route: 042
     Dates: start: 20040607, end: 20040821
  2. TYLENOL [Concomitant]
  3. BENADRYL ^ACHE^ (DIPHENHYDRAMINE HYDROCHLORIDE, AMMONIUM CHLORIDE, MEN [Concomitant]
  4. DEXAMETHASONE [Concomitant]
  5. TAGAMET [Concomitant]
  6. FAMVIR [Concomitant]
  7. DEMECLOCYCLINE (DEMECLOCYCLINE) [Concomitant]
  8. DECADRON [Concomitant]
  9. DIFLUCAN [Concomitant]
  10. CIPROL ^BAYER^ (CIPROFLOXACIN) [Concomitant]
  11. MEPRON [Concomitant]
  12. COZAAR [Concomitant]
  13. COREG [Concomitant]
  14. POTASSIUM CHLORIDE [Concomitant]

REACTIONS (8)
  - BONE MARROW DEPRESSION [None]
  - CARDIAC FAILURE CONGESTIVE [None]
  - DIABETES MELLITUS [None]
  - MYOCARDIAL INFARCTION [None]
  - NEOPLASM MALIGNANT [None]
  - PNEUMONIA [None]
  - RESPIRATORY DISTRESS [None]
  - SEPSIS [None]
